APPROVED DRUG PRODUCT: ANTRENYL
Active Ingredient: OXYPHENONIUM BROMIDE
Strength: 5MG
Dosage Form/Route: TABLET;ORAL
Application: N008492 | Product #002
Applicant: NOVARTIS PHARMACEUTICALS CORP
Approved: Approved Prior to Jan 1, 1982 | RLD: No | RS: No | Type: DISCN